FAERS Safety Report 10216079 (Version 1)
Quarter: 2014Q2

REPORT INFORMATION
  Report Type: Spontaneous
  Country: US (occurrence: None)
  Receive Date: 20140603
  Receipt Date: 20140603
  Transmission Date: 20141212
  Serious: Yes (Other)
  Sender: FDA-Public Use
  Company Number: None

PATIENT
  Age: 59 Year
  Sex: Female
  Weight: 112.04 kg

DRUGS (2)
  1. CARBIDOPA/LEVODOPA [Suspect]
     Indication: PARKINSON^S DISEASE
     Route: 048
     Dates: start: 201102, end: 201109
  2. REQUIP [Suspect]
     Route: 048
     Dates: start: 201003, end: 201005

REACTIONS (3)
  - Drug ineffective [None]
  - Nausea [None]
  - Malaise [None]
